FAERS Safety Report 6848473-9 (Version None)
Quarter: 2010Q3

REPORT INFORMATION
  Report Type: 
  Country: None (occurrence: None)
  Receive Date: 20100716
  Receipt Date: 20100706
  Transmission Date: 20110219
  Serious: Yes (Other)
  Sender: FDA-Public Use
  Company Number: US-JNJFOC-20100301428

PATIENT
  Sex: Male
  Weight: 97.52 kg

DRUGS (5)
  1. SANDOZ FENTANYL TRANSDERMAL SYSTEM [Suspect]
     Indication: PAIN
     Route: 062
  2. SANDOZ FENTANYL TRANSDERMAL SYSTEM [Suspect]
     Route: 062
  3. SANDOZ FENTANYL TRANSDERMAL SYSTEM [Suspect]
     Route: 062
  4. LYRICA [Suspect]
     Indication: NEURALGIA
     Dosage: 100
     Route: 065
     Dates: start: 20070327
  5. PERCOCET [Concomitant]
     Indication: PAIN
     Dosage: FREQUENCY: 2 TO 4 PER DAY
     Route: 048

REACTIONS (3)
  - CONVULSION [None]
  - PRODUCT ADHESION ISSUE [None]
  - WRONG TECHNIQUE IN DRUG USAGE PROCESS [None]
